FAERS Safety Report 23232575 (Version 1)
Quarter: 2023Q4

REPORT INFORMATION
  Report Type: Report from Study
  Country: AT (occurrence: AT)
  Receive Date: 20231128
  Receipt Date: 20231128
  Transmission Date: 20240110
  Serious: Yes (Death, Hospitalization, Other)
  Sender: FDA-Public Use
  Company Number: AT-JNJFOC-20231056501

PATIENT
  Sex: Male
  Weight: 86 kg

DRUGS (7)
  1. BORTEZOMIB [Suspect]
     Active Substance: BORTEZOMIB
     Indication: Amyloidosis
     Dosage: 1 MILLIGRAM, 1/WEEK
     Route: 058
     Dates: start: 20230817, end: 20230824
  2. BORTEZOMIB [Suspect]
     Active Substance: BORTEZOMIB
     Dosage: 1.3 MILLIGRAM, 1/WEEK
     Route: 058
     Dates: start: 20230831, end: 20230907
  3. BORTEZOMIB [Suspect]
     Active Substance: BORTEZOMIB
     Dosage: 2 MILLIGRAM, 1/WEEK
     Route: 058
     Dates: start: 20230914, end: 20230921
  4. BORTEZOMIB [Suspect]
     Active Substance: BORTEZOMIB
     Dosage: 1.3 MILLIGRAM, 1/WEEK
     Route: 058
     Dates: start: 20230831, end: 20230921
  5. DEXAMETHASONE [Concomitant]
     Active Substance: DEXAMETHASONE
     Indication: Product used for unknown indication
     Dosage: UNK
     Route: 065
     Dates: start: 20230817, end: 20231012
  6. CYCLOPHOSPHAMIDE [Concomitant]
     Active Substance: CYCLOPHOSPHAMIDE
     Indication: Product used for unknown indication
     Dosage: UNK
     Route: 065
     Dates: start: 20230817, end: 20231005
  7. DARZALEX [Concomitant]
     Active Substance: DARATUMUMAB
     Indication: Product used for unknown indication
     Dosage: UNK
     Route: 065
     Dates: start: 20230817, end: 20231012

REACTIONS (3)
  - Arrhythmia [Fatal]
  - Cardiac failure congestive [Not Recovered/Not Resolved]
  - Off label use [Unknown]

NARRATIVE: CASE EVENT DATE: 20231002
